FAERS Safety Report 23527257 (Version 1)
Quarter: 2024Q1

REPORT INFORMATION
  Report Type: Spontaneous
  Country: CA (occurrence: CA)
  Receive Date: 20240215
  Receipt Date: 20240215
  Transmission Date: 20240409
  Serious: Yes (Other)
  Sender: FDA-Public Use
  Company Number: CA-PFIZER INC-202400040867

PATIENT
  Sex: Male

DRUGS (2)
  1. METHOTREXATE SODIUM [Suspect]
     Active Substance: METHOTREXATE SODIUM
     Indication: Granulomatosis with polyangiitis
     Dosage: UNK
     Route: 065
  2. PREDNISONE [Suspect]
     Active Substance: PREDNISONE
     Indication: Granulomatosis with polyangiitis
     Route: 065

REACTIONS (7)
  - Episcleritis [Unknown]
  - Haematuria [Unknown]
  - Mononeuropathy multiplex [Unknown]
  - Nasal septum ulceration [Unknown]
  - Orchitis [Unknown]
  - Peroneal nerve palsy [Unknown]
  - Skin ulcer [Unknown]
